FAERS Safety Report 18979314 (Version 1)
Quarter: 2021Q1

REPORT INFORMATION
  Report Type: Other
  Country: GB (occurrence: GB)
  Receive Date: 20210308
  Receipt Date: 20210308
  Transmission Date: 20210420
  Serious: Yes (Other)
  Sender: FDA-Public Use
  Company Number: GB-MACLEODS PHARMA UK LTD-MAC2021030369

PATIENT

DRUGS (3)
  1. DICLOFENAC [Concomitant]
     Active Substance: DICLOFENAC
     Indication: ILL-DEFINED DISORDER
     Dosage: UNK
     Route: 065
  2. CELECOXIB 200 MG [Suspect]
     Active Substance: CELECOXIB
     Indication: INFLAMMATION
     Dosage: 200 MILLIGRAM
     Route: 048
     Dates: start: 20210224, end: 20210226
  3. IBUPROFEN. [Concomitant]
     Active Substance: IBUPROFEN
     Indication: ILL-DEFINED DISORDER
     Dosage: UNK
     Route: 065

REACTIONS (3)
  - Anxiety [Recovered/Resolved]
  - Depression [Recovered/Resolved]
  - Adverse drug reaction [Recovered/Resolved]

NARRATIVE: CASE EVENT DATE: 20210225
